FAERS Safety Report 8586446-9 (Version None)
Quarter: 2012Q3

REPORT INFORMATION
  Report Type: 
  Country: None (occurrence: None)
  Receive Date: 20120810
  Receipt Date: 20120803
  Transmission Date: 20120928
  Serious: Yes (Hospitalization)
  Sender: FDA-Public Use
  Company Number: ZA-ASTRAZENECA-2012SE55396

PATIENT
  Sex: Male

DRUGS (2)
  1. MEROPENEM [Suspect]
     Route: 042
  2. WARFARIN SODIUM [Concomitant]

REACTIONS (2)
  - COAGULOPATHY [None]
  - BLOOD IRON INCREASED [None]
